FAERS Safety Report 17362422 (Version 1)
Quarter: 2020Q1

REPORT INFORMATION
  Report Type: Spontaneous
  Country: US (occurrence: US)
  Receive Date: 20200201
  Receipt Date: 20200201
  Transmission Date: 20200409
  Serious: Yes (Other)
  Sender: FDA-Public Use
  Company Number: None

PATIENT
  Age: 50 Year
  Sex: Female
  Weight: 67.5 kg

DRUGS (6)
  1. HYSROCHLOROTIZIDE 25MG [Concomitant]
  2. METOPROLOL 50 MG [Concomitant]
     Active Substance: METOPROLOL
  3. ASPIRIN 325MG DAILY [Concomitant]
  4. TYLENOL ARTHRITIS PAIN [Concomitant]
     Active Substance: ACETAMINOPHEN
  5. CHANTIX [Suspect]
     Active Substance: VARENICLINE TARTRATE
     Indication: SMOKING CESSATION THERAPY
     Dosage: ?          QUANTITY:1 TABLET(S);?
     Route: 048
     Dates: start: 20190901, end: 20191115
  6. AMLODOPINE 10MG [Concomitant]

REACTIONS (3)
  - Hypoaesthesia [None]
  - Muscular weakness [None]
  - Paraesthesia [None]

NARRATIVE: CASE EVENT DATE: 20191115
